FAERS Safety Report 6517488-2 (Version None)
Quarter: 2009Q4

REPORT INFORMATION
  Report Type: 
  Country: None (occurrence: None)
  Receive Date: 20091224
  Receipt Date: 20091215
  Transmission Date: 20100525
  Serious: Yes (Disabling, Other)
  Sender: FDA-Public Use
  Company Number: US-CELGENEUS-163-21880-09110975

PATIENT
  Sex: Female

DRUGS (2)
  1. REVLIMID [Suspect]
     Indication: MULTIPLE MYELOMA
     Route: 048
     Dates: start: 20090821, end: 20091101
  2. REVLIMID [Suspect]
     Route: 048
     Dates: start: 20091109, end: 20091201

REACTIONS (6)
  - ANAEMIA [None]
  - BLOOD CREATININE INCREASED [None]
  - BONE PAIN [None]
  - DISEASE PROGRESSION [None]
  - HYPOPHAGIA [None]
  - WEIGHT DECREASED [None]
